FAERS Safety Report 8299549-3 (Version None)
Quarter: 2012Q2

REPORT INFORMATION
  Report Type: 
  Country: None (occurrence: None)
  Receive Date: 20120419
  Receipt Date: 20120417
  Transmission Date: 20120825
  Serious: No
  Sender: FDA-Public Use
  Company Number: US-B.I. PHARMACEUTICALS,INC./RIDGEFIELD-2012-BP-07320BP

PATIENT
  Sex: Male

DRUGS (7)
  1. COREG [Concomitant]
     Dosage: 50 MG
     Route: 048
  2. ATORVASTATIN [Concomitant]
     Indication: BLOOD CHOLESTEROL INCREASED
     Dosage: 40 MG
     Route: 048
  3. PLAVIX [Concomitant]
     Route: 048
  4. SPIRIVA [Suspect]
     Indication: BRONCHITIS CHRONIC
     Dosage: 18 MCG
     Route: 055
     Dates: start: 20120301
  5. PAXIL [Suspect]
     Dosage: 10 MG
     Route: 048
     Dates: start: 20120301
  6. HYDROCHLOROTHIAZIDE [Concomitant]
     Indication: HYPERTENSION
     Dosage: 37.5 MG
     Route: 048
     Dates: start: 20060101, end: 20120401
  7. NORVASC [Concomitant]
     Dosage: 10 MG
     Route: 048

REACTIONS (1)
  - BLOOD POTASSIUM INCREASED [None]
